FAERS Safety Report 25650466 (Version 1)
Quarter: 2025Q3

REPORT INFORMATION
  Report Type: Spontaneous
  Country: US (occurrence: US)
  Receive Date: 20250806
  Receipt Date: 20250806
  Transmission Date: 20251021
  Serious: Yes (Death, Hospitalization, Other)
  Sender: FRESENIUS KABI
  Company Number: US-FreseniusKabi-FK202510951

PATIENT
  Age: 86 Year
  Sex: Male

DRUGS (2)
  1. HYDRALAZINE HYDROCHLORIDE [Suspect]
     Active Substance: HYDRALAZINE HYDROCHLORIDE
     Indication: Product used for unknown indication
     Route: 042
  2. AMIODARONE [Concomitant]
     Active Substance: AMIODARONE
     Indication: Atrial fibrillation

REACTIONS (2)
  - Pulmonary alveolar haemorrhage [Fatal]
  - Lupus-like syndrome [Unknown]
